FAERS Safety Report 8110331-X (Version None)
Quarter: 2012Q1

REPORT INFORMATION
  Report Type: 
  Country: None (occurrence: None)
  Receive Date: 20120202
  Receipt Date: 20120126
  Transmission Date: 20120608
  Serious: Yes (Other)
  Sender: FDA-Public Use
  Company Number: US-ABBOTT-12P-163-0898749-00

PATIENT
  Age: 68 Year
  Sex: Female

DRUGS (8)
  1. HUMIRA [Suspect]
     Indication: RHEUMATOID ARTHRITIS
     Dates: start: 20020901
  2. NEXIUM [Suspect]
     Indication: GASTROOESOPHAGEAL REFLUX DISEASE
     Dates: start: 20040101, end: 20120122
  3. METHOTREXATE [Concomitant]
     Indication: PRODUCT USED FOR UNKNOWN INDICATION
     Dosage: 5,  2.5MG TABLETS ON WEDNESDAYS
     Dates: start: 20020901
  4. LEVAQUIN [Suspect]
     Indication: RESPIRATORY TRACT INFECTION
  5. CALCIUM [Concomitant]
     Indication: PRODUCT USED FOR UNKNOWN INDICATION
     Dosage: OTC, 500 OR 600MG ONCE A DAY
  6. ASPIRIN [Concomitant]
     Indication: PRODUCT USED FOR UNKNOWN INDICATION
  7. ATELVIA [Concomitant]
     Indication: OSTEOPOROSIS PROPHYLAXIS
     Dates: start: 20120122
  8. FOLIC ACID [Concomitant]
     Indication: PRODUCT USED FOR UNKNOWN INDICATION
     Dates: start: 20020901

REACTIONS (16)
  - ARTHRALGIA [None]
  - THYROID NEOPLASM [None]
  - ASTHMA [None]
  - GASTROOESOPHAGEAL REFLUX DISEASE [None]
  - VITAMIN D DECREASED [None]
  - RESPIRATORY DISORDER [None]
  - CHRONIC OBSTRUCTIVE PULMONARY DISEASE [None]
  - INAPPROPRIATE SCHEDULE OF DRUG ADMINISTRATION [None]
  - ALOPECIA [None]
  - MAGNESIUM DEFICIENCY [None]
  - GAIT DISTURBANCE [None]
  - CALCIUM DEFICIENCY [None]
  - TENDONITIS [None]
  - RESPIRATORY TRACT INFECTION [None]
  - BRONCHITIS [None]
  - MUSCLE SPASMS [None]
